FAERS Safety Report 18416881 (Version 1)
Quarter: 2020Q4

REPORT INFORMATION
  Report Type: Spontaneous
  Country: PT (occurrence: PT)
  Receive Date: 20201022
  Receipt Date: 20201022
  Transmission Date: 20210114
  Serious: Yes (Hospitalization, Other)
  Sender: FDA-Public Use
  Company Number: PT-PERRIGO-20PT014876

PATIENT

DRUGS (2)
  1. IBUPROFEN. [Suspect]
     Active Substance: IBUPROFEN
     Indication: PYREXIA
  2. IBUPROFEN. [Suspect]
     Active Substance: IBUPROFEN
     Indication: VARICELLA
     Route: 065

REACTIONS (16)
  - Pyrexia [Unknown]
  - Skin infection [Unknown]
  - Leukocytosis [Unknown]
  - Tachycardia [Unknown]
  - Skin necrosis [Unknown]
  - Breath sounds abnormal [Unknown]
  - Disease complication [Unknown]
  - Dermatitis [Unknown]
  - Cough [Unknown]
  - Tachypnoea [Unknown]
  - Splenic abscess [Recovered/Resolved]
  - Skin injury [Unknown]
  - Pneumonia [Unknown]
  - Dyspnoea [Unknown]
  - Pleural effusion [Unknown]
  - C-reactive protein increased [Unknown]
